FAERS Safety Report 7669286-4 (Version None)
Quarter: 2011Q3

REPORT INFORMATION
  Report Type: 
  Country: None (occurrence: None)
  Receive Date: 20110808
  Receipt Date: 20110801
  Transmission Date: 20111222
  Serious: Yes (Hospitalization, Other)
  Sender: FDA-Public Use
  Company Number: PHHY2011CA39543

PATIENT
  Weight: 70 kg

DRUGS (9)
  1. EVISTA [Concomitant]
     Dosage: 670 MG, QD
  2. FORTEO [Concomitant]
     Dosage: 20 MG, QD
  3. VITAMIN D [Concomitant]
     Dosage: 400 MG, BID
     Dates: start: 20010101
  4. CALCIUM CARBONATE [Concomitant]
     Dosage: 500 MG, BID
  5. HORMONES AND RELATED AGENTS [Concomitant]
  6. MIACALCIN [Concomitant]
     Dosage: 200 IU,
     Route: 045
  7. ZOLEDRONOC ACID [Suspect]
     Dosage: 5 MG,
     Route: 042
     Dates: start: 20090811
  8. DIDROCAL [Concomitant]
     Dosage: 400 MG, QD
  9. ACTONEL [Concomitant]
     Dosage: UNK UKN, UNK
     Dates: start: 20060101, end: 20090101

REACTIONS (2)
  - RIB FRACTURE [None]
  - STERNAL FRACTURE [None]
